FAERS Safety Report 21257342 (Version 2)
Quarter: 2022Q3

REPORT INFORMATION
  Report Type: Spontaneous
  Country: TH (occurrence: TH)
  Receive Date: 20220826
  Receipt Date: 20220921
  Transmission Date: 20221026
  Serious: No
  Sender: FDA-Public Use
  Company Number: TH-MLMSERVICE-20220811-3728267-1

PATIENT
  Age: 30 Month
  Sex: Male

DRUGS (3)
  1. MONTELUKAST [Suspect]
     Active Substance: MONTELUKAST SODIUM
     Indication: Bronchial disorder
     Dosage: MONTELUKAST (10) 1/2 TABLET PO OD, 1 MONTH PRIOR TO ONSET
     Route: 048
  2. FLUTICASONE PROPIONATE\SALMETEROL XINAFOATE [Concomitant]
     Active Substance: FLUTICASONE PROPIONATE\SALMETEROL XINAFOATE
     Indication: Hyperresponsive to stimuli
     Dosage: 1 PUFF VIA NEBULIZER, ONCE DAILY
     Route: 055
  3. MONTELUKAST [Suspect]
     Active Substance: MONTELUKAST SODIUM
     Indication: Bronchial disorder
     Dosage: MONTELUKAST 4 MG GRANULE 1 SACHET PO OD (1 YR AND 1 MONTH PRIOR TO SYMPTOMS ONSET), STRENGTH: 4 MG
     Route: 048

REACTIONS (2)
  - Mutism [Recovered/Resolved]
  - Apathy [Recovered/Resolved]
